FAERS Safety Report 8008900-0 (Version None)
Quarter: 2011Q4

REPORT INFORMATION
  Report Type: 
  Country: None (occurrence: None)
  Receive Date: 20111221
  Receipt Date: 20111212
  Transmission Date: 20120403
  Serious: Yes (Other)
  Sender: FDA-Public Use
  Company Number: 2009JP007542

PATIENT
  Age: 33 Year
  Sex: Female

DRUGS (9)
  1. PREDNISOLONE [Concomitant]
  2. CINAL (ASCORBIC ACID) [Concomitant]
  3. TACROLIMUS [Suspect]
     Indication: LUPUS NEPHRITIS
     Dosage: 3 MG,,/D, ORAL
     Route: 048
     Dates: start: 20070730, end: 20071105
  4. LIPITOR [Concomitant]
  5. COTRIM [Concomitant]
  6. FAMOTIDINE [Concomitant]
  7. FOSAMAX [Concomitant]
  8. LOXONIN (LOXOPROFEN) [Concomitant]
  9. COMELIAN (DILAZEP DIHYDROCHLORIDE) [Concomitant]

REACTIONS (2)
  - RHEUMATOID ARTHRITIS [None]
  - CONCOMITANT DISEASE AGGRAVATED [None]
